FAERS Safety Report 9103027 (Version 1)
Quarter: 2013Q1

REPORT INFORMATION
  Report Type: Spontaneous
  Country: GB (occurrence: GB)
  Receive Date: 20130219
  Receipt Date: 20130219
  Transmission Date: 20140127
  Serious: Yes (Other)
  Sender: FDA-Public Use
  Company Number: GB-AMGEN-GBRSP2012072478

PATIENT
  Age: 71 Year
  Sex: Female

DRUGS (5)
  1. ENBREL [Suspect]
     Indication: RHEUMATOID ARTHRITIS
     Dosage: 25 MG, WEEKLY
     Route: 058
     Dates: start: 201205
  2. PREDNISOLONE [Concomitant]
     Dosage: 9 MG, 1X/DAY
     Route: 048
  3. CALCICHEW-D3 [Concomitant]
     Dosage: UNK
  4. AMLODIPINE [Concomitant]
     Dosage: 5 MG, 1X/DAY
     Route: 048
  5. LANSOPRAZOLE [Concomitant]
     Dosage: 30 MG, 1X/DAY
     Route: 048

REACTIONS (5)
  - Syncope [Unknown]
  - Urinary tract infection [Unknown]
  - Drug administration error [Unknown]
  - Pain [Unknown]
  - Discomfort [Unknown]
